FAERS Safety Report 5452681-1 (Version None)
Quarter: 2007Q3

REPORT INFORMATION
  Report Type: 
  Country: None (occurrence: None)
  Receive Date: 20070914
  Receipt Date: 20070807
  Transmission Date: 20080115
  Serious: Yes (Other)
  Sender: FDA-Public Use
  Company Number: US-GENENTECH-245440

PATIENT
  Age: 43 Year
  Sex: Female

DRUGS (2)
  1. XOLAIR [Suspect]
     Indication: ASTHMA
     Dosage: UNK, Q2W
     Dates: start: 20070717
  2. XOLAIR [Suspect]
     Dates: start: 20070807

REACTIONS (1)
  - UPPER RESPIRATORY TRACT INFECTION [None]
